FAERS Safety Report 21472616 (Version 1)
Quarter: 2022Q4

REPORT INFORMATION
  Report Type: Spontaneous
  Country: US (occurrence: US)
  Receive Date: 20221018
  Receipt Date: 20221018
  Transmission Date: 20230113
  Serious: No
  Sender: FDA-Public Use
  Company Number: US-SANOFI-01322929

PATIENT
  Sex: Female

DRUGS (1)
  1. LANTUS SOLOSTAR [Suspect]
     Active Substance: INSULIN GLARGINE
     Dosage: 6 UNITS IN MORNING AND 8 UNITS IN THE EVENING

REACTIONS (2)
  - Blood glucose decreased [Unknown]
  - Inappropriate schedule of product administration [Unknown]
